FAERS Safety Report 9704981 (Version 2)
Quarter: 2014Q1

REPORT INFORMATION
  Report Type: Spontaneous
  Country: US (occurrence: US)
  Receive Date: 20131122
  Receipt Date: 20140228
  Transmission Date: 20141002
  Serious: No
  Sender: FDA-Public Use
  Company Number: US-ABBVIE-13P-163-1137919-00

PATIENT
  Age: 85 Year
  Sex: Male
  Weight: 90.8 kg

DRUGS (12)
  1. ANDROGEL [Suspect]
     Indication: BLOOD TESTOSTERONE DECREASED
     Dosage: 2 PUMPS/DAY
     Route: 061
     Dates: start: 20130515, end: 201306
  2. ANDROGEL [Suspect]
     Dosage: 1 PUMP PER DAY
     Route: 061
     Dates: start: 201306
  3. JAYLIN [Concomitant]
     Indication: PRODUCT USED FOR UNKNOWN INDICATION
  4. ASPIRIN [Concomitant]
     Indication: CARDIOVASCULAR EVENT PROPHYLAXIS
  5. VITAMIN D3/CALCIUM/MAGNESIUM [Concomitant]
     Indication: PAIN IN EXTREMITY
  6. VITAMIN D3/CALCIUM/MAGNESIUM [Concomitant]
     Indication: VITAMIN SUPPLEMENTATION
  7. METAMUCIL [Concomitant]
     Indication: CONSTIPATION PROPHYLAXIS
  8. LORAZEPAM [Concomitant]
     Indication: INSOMNIA
  9. SINGULAIR [Concomitant]
     Indication: SEASONAL ALLERGY
  10. FISH OIL [Concomitant]
     Indication: BLOOD CHOLESTEROL INCREASED
  11. EYE DROPS [Concomitant]
     Indication: HYPERSENSITIVITY
  12. UNKNOWN EYE DROPS [Concomitant]
     Indication: GLAUCOMA

REACTIONS (6)
  - Testicular pain [Recovered/Resolved]
  - Orchitis [Recovered/Resolved]
  - Oral pain [Recovered/Resolved]
  - Neuropathy peripheral [Not Recovered/Not Resolved]
  - Rhinorrhoea [Not Recovered/Not Resolved]
  - Testicular pain [Recovered/Resolved]
